FAERS Safety Report 8917688 (Version 2)
Quarter: 2012Q4

REPORT INFORMATION
  Report Type: 
  Country: US (occurrence: US)
  Receive Date: 20121119
  Receipt Date: 20121219
  Transmission Date: 20130627
  Serious: Yes (Hospitalization, Other)
  Sender: FDA-Public Use
  Company Number: US-009507513-1203USA02822

PATIENT

DRUGS (9)
  1. FOSAMAX [Suspect]
     Indication: OSTEOPENIA
     Dosage: 10 mg, UNK
     Route: 048
     Dates: start: 2001, end: 200411
  2. FOSAMAX [Suspect]
     Indication: OSTEOPOROSIS
     Dosage: 70 mg, UNK
     Route: 048
     Dates: start: 20041202
  3. OXYCODONE [Concomitant]
     Indication: FIBROMYALGIA
     Dosage: 5-90
     Route: 048
     Dates: start: 1990
  4. OXYCODONE [Concomitant]
     Indication: PAIN
  5. OXYCONTIN [Concomitant]
     Indication: FIBROMYALGIA
     Dosage: 80-1600
     Route: 048
     Dates: start: 1990
  6. OXYCONTIN [Concomitant]
     Indication: PAIN
  7. ALBUTEROL [Concomitant]
     Indication: ASTHMA
     Dosage: UNK, prn
     Route: 055
  8. PREDNISONE [Concomitant]
     Indication: ASTHMA
     Dosage: 5-20 mg, qd
  9. GABAPENTIN [Concomitant]
     Indication: PAIN
     Dosage: 600-1800 mg, qd

REACTIONS (133)
  - Femur fracture [Unknown]
  - Open reduction of fracture [Unknown]
  - Fall [Unknown]
  - Explorative laparotomy [Unknown]
  - Internal fixation of fracture [Unknown]
  - Medical device removal [Unknown]
  - Fracture delayed union [Unknown]
  - Fracture delayed union [Unknown]
  - Limb operation [Unknown]
  - Systemic lupus erythematosus [Unknown]
  - Humerus fracture [Recovering/Resolving]
  - Postoperative respiratory distress [Recovered/Resolved]
  - Arthroscopy [Unknown]
  - Joint arthroplasty [Unknown]
  - Knee arthroplasty [Unknown]
  - Peripheral nerve decompression [Unknown]
  - Atelectasis [Unknown]
  - Ear tube insertion [Unknown]
  - Mass [Unknown]
  - Knee arthroplasty [Unknown]
  - Cholecystectomy [Unknown]
  - Cerebrovascular accident [Unknown]
  - Conductive deafness [Unknown]
  - Amputation [Unknown]
  - Toe amputation [Unknown]
  - Neuropathy peripheral [Unknown]
  - Mass excision [Unknown]
  - Femur fracture [Unknown]
  - Syncope [Unknown]
  - Fall [Unknown]
  - Skin ulcer [Unknown]
  - Fatigue [Not Recovered/Not Resolved]
  - Mass [Unknown]
  - Cough [Unknown]
  - Colitis ischaemic [Unknown]
  - Gastroenteritis [Unknown]
  - Hypokalaemia [Recovered/Resolved]
  - Lipoma excision [Unknown]
  - Convulsion [Unknown]
  - Adrenal insufficiency [Unknown]
  - Bloody discharge [Unknown]
  - Pain [Not Recovered/Not Resolved]
  - Cholecystitis [Unknown]
  - Post procedural bile leak [Unknown]
  - Polyuria [Unknown]
  - Hepatic encephalopathy [Unknown]
  - Anxiety [Unknown]
  - Depression [Unknown]
  - Sepsis syndrome [Recovered/Resolved]
  - Device failure [Unknown]
  - Coccidioidomycosis [Unknown]
  - Mental status changes [Unknown]
  - Hypotension [Unknown]
  - Clostridium difficile colitis [Unknown]
  - Pneumonia [Unknown]
  - Hypokalaemia [Unknown]
  - Renal failure [Unknown]
  - Pyrexia [Unknown]
  - Diarrhoea [Unknown]
  - Nausea [Unknown]
  - Diarrhoea [Recovered/Resolved]
  - Low turnover osteopathy [Unknown]
  - Blood potassium decreased [Unknown]
  - Therapeutic procedure [Unknown]
  - Pernicious anaemia [Unknown]
  - Bunion operation [Unknown]
  - Rheumatoid arthritis [Unknown]
  - Diplopia [Unknown]
  - Appendicectomy [Unknown]
  - Limb operation [Unknown]
  - Foot operation [Unknown]
  - Wrist surgery [Unknown]
  - Refraction disorder [Unknown]
  - Cataract operation [Unknown]
  - Eye disorder [Unknown]
  - Skin ulcer [Unknown]
  - Subcutaneous abscess [Unknown]
  - Sinusitis [Unknown]
  - Iron deficiency anaemia [Unknown]
  - Osteoarthritis [Unknown]
  - Peripheral vascular disorder [Unknown]
  - Spondylolisthesis [Unknown]
  - Skin ulcer [Unknown]
  - Intervertebral disc degeneration [Unknown]
  - Urinary incontinence [Unknown]
  - Glaucoma [Unknown]
  - Fall [Unknown]
  - Musculoskeletal disorder [Unknown]
  - Temporomandibular joint syndrome [Unknown]
  - Muscle atrophy [Unknown]
  - Migraine [Unknown]
  - Adrenocortical insufficiency acute [Unknown]
  - Colitis [Unknown]
  - Skin ulcer [Not Recovered/Not Resolved]
  - Staphylococcal infection [Recovered/Resolved]
  - Osteoarthritis [Unknown]
  - Wrist fracture [Unknown]
  - Cholelithiasis [Unknown]
  - Pancreatic atrophy [Unknown]
  - Escherichia infection [Unknown]
  - Coccidioidomycosis [Unknown]
  - Restless legs syndrome [Unknown]
  - Fall [Unknown]
  - Excoriation [Unknown]
  - Localised infection [Unknown]
  - Knee deformity [Unknown]
  - Psoriatic arthropathy [Unknown]
  - Drug dependence [Not Recovered/Not Resolved]
  - Chronic obstructive pulmonary disease [Not Recovered/Not Resolved]
  - Normochromic normocytic anaemia [Unknown]
  - Cryptogenic cirrhosis [Unknown]
  - Biliary cirrhosis [Unknown]
  - Gastric haemorrhage [Unknown]
  - Respiratory tract infection [Unknown]
  - Fall [Unknown]
  - Leukopenia [Unknown]
  - Fall [Unknown]
  - Contusion [Unknown]
  - Spondylolisthesis [Unknown]
  - Otitis media chronic [Not Recovered/Not Resolved]
  - Diverticulum [Unknown]
  - Hypotension [Unknown]
  - Transfusion [Unknown]
  - Metatarsal excision [Unknown]
  - Neurogenic bladder [Unknown]
  - Joint effusion [Unknown]
  - Gastrooesophageal reflux disease [Unknown]
  - Drug ineffective [Unknown]
  - Constipation [Not Recovered/Not Resolved]
  - Drug ineffective [Unknown]
  - Drug ineffective [Unknown]
  - Vomiting [Unknown]
  - Gastritis [Unknown]
